FAERS Safety Report 5632022-7 (Version None)
Quarter: 2008Q1

REPORT INFORMATION
  Report Type: 
  Country: None (occurrence: None)
  Receive Date: 20080213
  Receipt Date: 20080119
  Transmission Date: 20080703
  Serious: Yes (Death)
  Sender: FDA-Public Use
  Company Number: 805#1#2008-00001

PATIENT
  Age: 61 Year

DRUGS (2)
  1. ALPROSTADIL [Suspect]
     Indication: ARTERIAL OCCLUSIVE DISEASE
     Dosage: INTRAVENOUS DRIP
     Route: 041
  2. ABBOKINASE [Concomitant]

REACTIONS (1)
  - SUBARACHNOID HAEMORRHAGE [None]
